FAERS Safety Report 8542540-X (Version None)
Quarter: 2012Q3

REPORT INFORMATION
  Report Type: 
  Country: None (occurrence: None)
  Receive Date: 20120726
  Receipt Date: 20120720
  Transmission Date: 20120928
  Serious: Yes (Other)
  Sender: FDA-Public Use
  Company Number: AU-ABBOTT-12P-008-0960451-00

PATIENT
  Age: 37 Year
  Sex: Female

DRUGS (4)
  1. SEROQUEL [Concomitant]
     Indication: PRODUCT USED FOR UNKNOWN INDICATION
     Dosage: (PREV.)
  2. VALPROATE SODIUM [Suspect]
     Indication: MENTAL DISORDER
  3. VALPROATE SODIUM [Suspect]
     Indication: EPILEPSY
     Route: 065
     Dates: end: 20120201
  4. TEGRETOL [Concomitant]
     Indication: PRODUCT USED FOR UNKNOWN INDICATION
     Dosage: (PREV.)

REACTIONS (12)
  - ABDOMINAL DISCOMFORT [None]
  - BALANCE DISORDER [None]
  - WEIGHT DECREASED [None]
  - CONVULSION [None]
  - NAUSEA [None]
  - HAEMATEMESIS [None]
  - LIVER DISORDER [None]
  - ABNORMAL BEHAVIOUR [None]
  - HEADACHE [None]
  - AGGRESSION [None]
  - FATIGUE [None]
  - VOMITING [None]
